FAERS Safety Report 8212519-6 (Version None)
Quarter: 2012Q1

REPORT INFORMATION
  Report Type: 
  Country: None (occurrence: None)
  Receive Date: 20120315
  Receipt Date: 20120309
  Transmission Date: 20120608
  Serious: Yes (Other)
  Sender: FDA-Public Use
  Company Number: ZA-GLAXOSMITHKLINE-B0788306A

PATIENT
  Age: 48 Year
  Sex: Male

DRUGS (1)
  1. ATOVAQUONE [Suspect]
     Indication: MALARIA PROPHYLAXIS
     Dosage: 1TAB PER DAY
     Route: 065
     Dates: start: 20110701

REACTIONS (2)
  - NEUTROPENIA [None]
  - MALAISE [None]
